FAERS Safety Report 25242016 (Version 1)
Quarter: 2025Q2

REPORT INFORMATION
  Report Type: Spontaneous
  Country: CN (occurrence: CN)
  Receive Date: 20250426
  Receipt Date: 20250426
  Transmission Date: 20250717
  Serious: Yes (Hospitalization, Other)
  Sender: AMGEN
  Company Number: CN-KYOWAKIRIN-2025KK007301

PATIENT
  Age: 82 Year
  Sex: Female

DRUGS (6)
  1. DARBEPOETIN ALFA [Suspect]
     Active Substance: DARBEPOETIN ALFA
     Indication: Chemotherapy
     Dosage: 400 MG, ONCE EVERY 30 DAYS
     Route: 058
     Dates: start: 20250223
  2. BEVACIZUMAB [Suspect]
     Active Substance: BEVACIZUMAB
     Indication: Chemotherapy
     Route: 041
     Dates: start: 20250223
  3. DOCETAXEL [Suspect]
     Active Substance: DOCETAXEL
     Indication: Chemotherapy
     Dosage: 80 MG, ONCE EVERY 30 DAYS
     Route: 041
     Dates: start: 20250223
  4. CAMRELIZUMAB [Suspect]
     Active Substance: CAMRELIZUMAB
     Indication: Chemotherapy
     Dosage: 200 MG, ONCE EVERY 30 DAYS
     Route: 040
     Dates: start: 20250223
  5. DEXAMETHASONE SODIUM PHOSPHATE [Concomitant]
     Active Substance: DEXAMETHASONE SODIUM PHOSPHATE
     Indication: Vomiting
     Dosage: 5 MG, ONCE EVERY 30 DAYS
     Route: 042
     Dates: start: 20250223, end: 20250328
  6. TROPISETRON HYDROCHLORIDE [Concomitant]
     Active Substance: TROPISETRON HYDROCHLORIDE
     Indication: Vomiting
     Dosage: 5 MG, ONCE EVERY 30 DAYS
     Route: 042
     Dates: start: 20250223, end: 20250328

REACTIONS (1)
  - Myelosuppression [Recovering/Resolving]

NARRATIVE: CASE EVENT DATE: 20250404
